FAERS Safety Report 17334407 (Version 3)
Quarter: 2021Q2

REPORT INFORMATION
  Report Type: Spontaneous
  Country: ES (occurrence: ES)
  Receive Date: 20200128
  Receipt Date: 20210603
  Transmission Date: 20210716
  Serious: Yes (Hospitalization, Other)
  Sender: FDA-Public Use
  Company Number: ES-BRISTOL-MYERS SQUIBB COMPANY-BMS-2020-005528

PATIENT
  Age: 64 Year
  Sex: Female
  Weight: 71.8 kg

DRUGS (7)
  1. CYTARABINE. [Suspect]
     Active Substance: CYTARABINE
     Dosage: 1.8 GRAM, BID
     Route: 042
     Dates: start: 20190419, end: 20190503
  2. CYTARABINE. [Suspect]
     Active Substance: CYTARABINE
     Indication: ACUTE MYELOID LEUKAEMIA
     Dosage: 180 MILLIGRAM, QD
     Route: 041
     Dates: start: 20190304, end: 20190310
  3. DAUNORUBICIN [Suspect]
     Active Substance: DAUNORUBICIN
     Indication: ACUTE MYELOID LEUKAEMIA
     Dosage: 110 MILLIGRAM, QD
     Route: 041
     Dates: start: 20190304, end: 20190306
  4. GLASDEGIB [Suspect]
     Active Substance: GLASDEGIB
     Indication: ACUTE MYELOID LEUKAEMIA
     Dosage: 100 MILLIGRAM, QD
     Route: 048
     Dates: start: 20190304, end: 20191202
  5. AMPHOTERICIN B. [Concomitant]
     Active Substance: AMPHOTERICIN B
     Indication: INFECTION PROPHYLAXIS
     Dosage: 1 MILLIGRAM/KILOGRAM, Q8H
     Route: 042
     Dates: start: 20200103, end: 20200110
  6. HYDREA [Suspect]
     Active Substance: HYDROXYUREA
     Indication: PROPHYLAXIS
     Dosage: 500 MILLIGRAM, TID (1 CAPSULE/8 HOURS)
     Route: 048
     Dates: start: 20191218, end: 20191224
  7. CYTARABINE. [Suspect]
     Active Substance: CYTARABINE
     Dosage: 1.8 GRAM, BID
     Route: 042
     Dates: start: 20190618, end: 20190622

REACTIONS (2)
  - Febrile neutropenia [Recovered/Resolved]
  - Malignant neoplasm progression [Unknown]

NARRATIVE: CASE EVENT DATE: 20191224
